FAERS Safety Report 14430841 (Version 1)
Quarter: 2018Q1

REPORT INFORMATION
  Report Type: Spontaneous
  Country: US (occurrence: US)
  Receive Date: 20180123
  Receipt Date: 20180123
  Transmission Date: 20180509
  Serious: No
  Sender: FDA-Public Use
  Company Number: None

PATIENT
  Sex: Male

DRUGS (2)
  1. MYLANTA [Suspect]
     Active Substance: ALUMINUM HYDROXIDE\DIMETHICONE\MAGNESIUM HYDROXIDE
  2. RANTIDINE SYRUP HCL [Suspect]
     Active Substance: RANITIDINE HYDROCHLORIDE

REACTIONS (1)
  - Treatment failure [None]
